FAERS Safety Report 9529270 (Version 1)
Quarter: 2013Q2

REPORT INFORMATION
  Report Type: Spontaneous
  Country: US (occurrence: None)
  Receive Date: 20130401
  Receipt Date: 20130401
  Transmission Date: 20140414
  Serious: Yes (Hospitalization, Other)
  Sender: FDA-Public Use
  Company Number: PHEH2012US016216

PATIENT
  Age: 87 Year
  Sex: Female

DRUGS (6)
  1. EXELON PATCH [Suspect]
     Dosage: 9.5 MG, QD (18MG/10CM2/ 24 HRS), TRANSDERMAL
     Route: 062
     Dates: start: 20120816
  2. LOPRESSOR (METOPROLOL TARTRATE), 50 MG [Concomitant]
  3. AMLODIPINE (AMLODIPINE), 5 MG [Concomitant]
  4. COUMADINE (WARFARIN SODIUM), 2 MG [Concomitant]
  5. PRAVASTATIN (PRAVASTATIN), 40 MG [Concomitant]
  6. ACETYLSALICYLIC ACID (ACETYLSALICYLIC ACID) [Concomitant]

REACTIONS (3)
  - Dyskinesia [None]
  - Muscle twitching [None]
  - Dehydration [None]
